FAERS Safety Report 8641941 (Version 3)
Quarter: 2013Q1

REPORT INFORMATION
  Report Type: Report from Study
  Country: US (occurrence: US)
  Receive Date: 20120628
  Receipt Date: 20130123
  Transmission Date: 20140127
  Serious: Yes (Hospitalization, Other)
  Sender: FDA-Public Use
  Company Number: US-ACTELION-A-US2012-67709

PATIENT
  Sex: Male
  Weight: 2.27 kg

DRUGS (1)
  1. TRACLEER [Suspect]
     Indication: FOETAL EXPOSURE DURING PREGNANCY
     Route: 064

REACTIONS (7)
  - Foetal exposure during pregnancy [Unknown]
  - Premature baby [Unknown]
  - Small for dates baby [Unknown]
  - Resuscitation [Unknown]
  - Caesarean section [None]
  - Maternal drugs affecting foetus [None]
  - Pleural effusion [None]
